FAERS Safety Report 17621130 (Version 2)
Quarter: 2020Q2

REPORT INFORMATION
  Report Type: Spontaneous
  Country: NL (occurrence: NL)
  Receive Date: 20200403
  Receipt Date: 20200422
  Transmission Date: 20200713
  Serious: Yes (Other)
  Sender: FDA-Public Use
  Company Number: NL-TEVA-2020-NL-1215838

PATIENT
  Age: 56 Year
  Sex: Female
  Weight: 77.3 kg

DRUGS (6)
  1. METHYL PREDNISON [Suspect]
     Active Substance: METHYLPREDNISOLONE
     Indication: ENDOCRINE OPHTHALMOPATHY
     Dosage: .1429 DOSAGE FORMS DAILY; 1 DF 1X PER WEEK
     Dates: start: 20200224, end: 20200316
  2. PROTAGENS (POVIDON) [Concomitant]
  3. EUTHYROX (LEVOTHYROXINE) [Concomitant]
  4. ALENDRONINEZUUR/CALCIUMCARBONAAT/COLECALCIFEROL [Concomitant]
     Dosage: TABLET + CHEWABLE TABLET
  5. STRUMAZOL (THIAMAZOL) [Concomitant]
  6. ANASTROZOL [Concomitant]
     Active Substance: ANASTROZOLE

REACTIONS (1)
  - Transaminases increased [Not Recovered/Not Resolved]

NARRATIVE: CASE EVENT DATE: 20200309
